FAERS Safety Report 6783584-8 (Version None)
Quarter: 2010Q2

REPORT INFORMATION
  Report Type: 
  Country: None (occurrence: None)
  Receive Date: 20100622
  Receipt Date: 20100614
  Transmission Date: 20101027
  Serious: Yes (Other)
  Sender: FDA-Public Use
  Company Number: PHHY2010JP40043

PATIENT
  Age: 57 Year
  Sex: Male

DRUGS (1)
  1. VOLTAREN [Suspect]
     Dosage: UNK
     Route: 048

REACTIONS (1)
  - MALLORY-WEISS SYNDROME [None]
